FAERS Safety Report 19418511 (Version 4)
Quarter: 2022Q1

REPORT INFORMATION
  Report Type: Spontaneous
  Country: US (occurrence: US)
  Receive Date: 20210615
  Receipt Date: 20220314
  Transmission Date: 20220423
  Serious: No
  Sender: FDA-Public Use
  Company Number: US-GLOBAL BLOOD THERAPEUTICS INC-US-GBT-21-01455

PATIENT
  Age: 53 Year
  Sex: Female

DRUGS (1)
  1. OXBRYTA [Suspect]
     Active Substance: VOXELOTOR
     Indication: Sickle cell disease
     Route: 048
     Dates: start: 2021

REACTIONS (12)
  - Chest discomfort [Unknown]
  - Drug interaction [Unknown]
  - Skin discolouration [Unknown]
  - Withdrawal syndrome [Unknown]
  - Weight decreased [Unknown]
  - Skin ulcer [Recovering/Resolving]
  - Fatigue [Unknown]
  - Sickle cell anaemia with crisis [Recovered/Resolved]
  - Decreased appetite [Recovered/Resolved]
  - Adverse drug reaction [Unknown]
  - Malaise [Unknown]
  - Product dose omission issue [Unknown]

NARRATIVE: CASE EVENT DATE: 20210426
